FAERS Safety Report 9118925 (Version 1)
Quarter: 2013Q1

REPORT INFORMATION
  Report Type: Spontaneous
  Country: IN (occurrence: IN)
  Receive Date: 20130226
  Receipt Date: 20130226
  Transmission Date: 20140127
  Serious: Yes (Death)
  Sender: FDA-Public Use
  Company Number: PHHY2011IN92102

PATIENT
  Sex: Female

DRUGS (5)
  1. GLIVEC [Suspect]
     Indication: CHRONIC MYELOID LEUKAEMIA
     Dosage: 400 MG
  2. GLIVEC [Suspect]
     Dosage: 300 MG
  3. GLIVEC [Suspect]
     Dosage: 400 MG
  4. GLIVEC [Suspect]
     Dosage: 600 MG
  5. GLIVEC [Suspect]
     Dosage: 600 MG
     Dates: start: 20120924

REACTIONS (2)
  - Death [Fatal]
  - Drug ineffective [Unknown]
